FAERS Safety Report 23698158 (Version 2)
Quarter: 2024Q2

REPORT INFORMATION
  Report Type: Report from Study
  Country: US (occurrence: US)
  Receive Date: 20240402
  Receipt Date: 20240607
  Transmission Date: 20240715
  Serious: Yes (Death, Other)
  Sender: FDA-Public Use
  Company Number: US-ARGENX-2024-ARGX-US002134

PATIENT

DRUGS (1)
  1. VYVGART [Suspect]
     Active Substance: EFGARTIGIMOD ALFA-FCAB
     Indication: Myasthenia gravis
     Dosage: UNK
     Route: 042
     Dates: start: 20230404

REACTIONS (3)
  - Death [Fatal]
  - Gastric cancer [Unknown]
  - Lymphoma [Unknown]

NARRATIVE: CASE EVENT DATE: 20240301
